FAERS Safety Report 21838882 (Version 1)
Quarter: 2023Q1

REPORT INFORMATION
  Report Type: Report from Study
  Country: DE (occurrence: DE)
  Receive Date: 20230109
  Receipt Date: 20230109
  Transmission Date: 20230417
  Serious: Yes (Death, Other)
  Sender: FDA-Public Use
  Company Number: DE-SA-2023SA005434

PATIENT

DRUGS (2)
  1. CAPLACIZUMAB [Suspect]
     Active Substance: CAPLACIZUMAB
     Indication: Immune thrombocytopenia
  2. HUMAN PLASMA [Concomitant]
     Active Substance: HUMAN PLASMA
     Indication: Immune thrombocytopenia

REACTIONS (3)
  - Cerebral infarction [Fatal]
  - Brain oedema [Fatal]
  - Cerebral haemorrhage [Fatal]
